FAERS Safety Report 4510743-7 (Version None)
Quarter: 2004Q4

REPORT INFORMATION
  Report Type: 
  Country: None (occurrence: None)
  Receive Date: 20041122
  Receipt Date: 20041108
  Transmission Date: 20050328
  Serious: Yes (Hospitalization, Other)
  Sender: FDA-Public Use
  Company Number: 2004091168

PATIENT
  Age: 21 Year
  Sex: Male

DRUGS (2)
  1. ZYRTEC [Suspect]
     Indication: URTICARIA CHRONIC
     Dosage: 10 MG, ORAL
     Route: 048
     Dates: start: 20041029, end: 20041101
  2. LACTOBACILLUS ACIDOPHILUS       (LACTOBACILLUS ACIDOPHILUS) [Suspect]
     Indication: GASTRITIS
     Dosage: (6 IN 1 D), ORAL
     Route: 048
     Dates: start: 20040201, end: 20041029

REACTIONS (4)
  - BLISTER [None]
  - HYPERTHERMIA [None]
  - OEDEMA PERIPHERAL [None]
  - URTICARIA [None]
